FAERS Safety Report 7960321-2 (Version None)
Quarter: 2011Q4

REPORT INFORMATION
  Report Type: 
  Country: None (occurrence: None)
  Receive Date: 20111206
  Receipt Date: 20111201
  Transmission Date: 20120403
  Serious: Yes (Hospitalization)
  Sender: FDA-Public Use
  Company Number: ES-ABBOTT-11P-144-0876092-00

PATIENT
  Age: 49 Year
  Sex: Male
  Weight: 68 kg

DRUGS (1)
  1. HUMIRA [Suspect]
     Indication: PSORIASIS
     Dosage: ONLY TWO ADMINITRATIONS: INDUCTION DOSE AND 1ST DOSE
     Route: 058
     Dates: start: 20111011, end: 20111103

REACTIONS (3)
  - LYMPHOPENIA [None]
  - PYREXIA [None]
  - HYPERTHERMIA [None]
